FAERS Safety Report 8074442-X (Version None)
Quarter: 2012Q1

REPORT INFORMATION
  Report Type: 
  Country: None (occurrence: None)
  Receive Date: 20120126
  Receipt Date: 20120126
  Transmission Date: 20120608
  Serious: Yes (Life-Threatening, Hospitalization)
  Sender: FDA-Public Use
  Company Number: US-TEVA-260634USA

PATIENT
  Sex: Male
  Weight: 65.9 kg

DRUGS (15)
  1. FLUOROURACIL [Suspect]
     Indication: HEAD AND NECK CANCER
     Route: 042
     Dates: start: 20101018, end: 20101213
  2. CISPLATIN [Suspect]
     Indication: HEAD AND NECK CANCER
     Route: 042
     Dates: start: 20101018, end: 20101018
  3. LOPERAMIDE HCL [Concomitant]
     Dates: start: 20101029
  4. CISPLATIN [Suspect]
     Route: 042
     Dates: start: 20101206, end: 20101206
  5. CETUXIMAB [Suspect]
     Route: 042
  6. FLUOROURACIL [Suspect]
     Route: 042
  7. CETUXIMAB [Suspect]
     Route: 042
  8. ACETAMINOPHEN [Concomitant]
     Indication: PROPHYLAXIS
     Dates: start: 20101029
  9. CISPLATIN [Suspect]
     Route: 042
  10. DEXAMETHASONE [Concomitant]
     Indication: PROPHYLAXIS
     Route: 048
  11. FLUOROURACIL [Suspect]
     Route: 042
     Dates: start: 20101210, end: 20101210
  12. CETUXIMAB [Suspect]
     Indication: HEAD AND NECK CANCER
     Route: 042
     Dates: start: 20101018, end: 20101206
  13. CETUXIMAB [Suspect]
     Route: 042
     Dates: start: 20101213, end: 20101213
  14. APREPITANT [Concomitant]
     Indication: PROPHYLAXIS
     Route: 042
     Dates: start: 20101018
  15. PROCHLORPERAZINE EDISYLATE [Concomitant]
     Indication: PROPHYLAXIS
     Dates: start: 20101029

REACTIONS (5)
  - PLATELET COUNT DECREASED [None]
  - INTESTINAL ISCHAEMIA [None]
  - EMBOLISM [None]
  - NEUTROPHIL COUNT DECREASED [None]
  - BLOOD BILIRUBIN INCREASED [None]
